FAERS Safety Report 6120662-0 (Version None)
Quarter: 2009Q1

REPORT INFORMATION
  Report Type: 
  Country: None (occurrence: None)
  Receive Date: 20090303
  Receipt Date: 20090216
  Transmission Date: 20090719
  Serious: Yes (Hospitalization)
  Sender: FDA-Public Use
  Company Number: 2009S1002704

PATIENT
  Age: 73 Year
  Sex: Female

DRUGS (1)
  1. NITROFURANTOIN [Suspect]
     Indication: URINARY TRACT INFECTION
     Dosage: 100 MG; DAILY

REACTIONS (5)
  - ANTINUCLEAR ANTIBODY INCREASED [None]
  - ELECTROCARDIOGRAM ABNORMAL [None]
  - HEPATITIS [None]
  - ORGANISING PNEUMONIA [None]
  - RESPIRATORY FAILURE [None]
